FAERS Safety Report 8360349-7 (Version None)
Quarter: 2012Q2

REPORT INFORMATION
  Report Type: 
  Country: None (occurrence: None)
  Receive Date: 20120515
  Receipt Date: 20120507
  Transmission Date: 20120825
  Serious: Yes (Other)
  Sender: FDA-Public Use
  Company Number: BR-JNJFOC-20120508870

PATIENT
  Age: 32 Year
  Sex: Female

DRUGS (2)
  1. DIPYRONE TAB [Concomitant]
     Indication: PAIN
     Route: 065
     Dates: start: 20120401
  2. ACETAMINOPHEN W/ CODEINE [Suspect]
     Indication: PAIN
     Dosage: 30MG
     Route: 048
     Dates: start: 20120401

REACTIONS (1)
  - HALLUCINATION [None]
